FAERS Safety Report 24526555 (Version 1)
Quarter: 2024Q4

REPORT INFORMATION
  Report Type: Report from Study
  Country: US (occurrence: US)
  Receive Date: 20241021
  Receipt Date: 20241021
  Transmission Date: 20250115
  Serious: No
  Sender: ROCHE
  Company Number: US-ROCHE-3207657

PATIENT
  Age: 89 Year
  Sex: Male

DRUGS (13)
  1. ZELBORAF [Suspect]
     Active Substance: VEMURAFENIB
     Indication: Thyroid cancer
     Dosage: TAKE 4 PILLS (960MG) DAILY.
     Route: 048
  2. ZELBORAF [Suspect]
     Active Substance: VEMURAFENIB
     Indication: Hypothyroidism
  3. ZELBORAF [Suspect]
     Active Substance: VEMURAFENIB
     Indication: Hyperlipidaemia
  4. ZELBORAF [Suspect]
     Active Substance: VEMURAFENIB
     Indication: Lung neoplasm malignant
  5. ATORVASTATIN [Concomitant]
     Active Substance: ATORVASTATIN
  6. CYANOCOBALAMIN [Concomitant]
     Active Substance: CYANOCOBALAMIN
  7. FINASTERIDE [Concomitant]
     Active Substance: FINASTERIDE
  8. FUROSEMIDE [Concomitant]
     Active Substance: FUROSEMIDE
  9. IRBESARTAN [Concomitant]
     Active Substance: IRBESARTAN
  10. LATANOPROST [Concomitant]
     Active Substance: LATANOPROST
  11. METOPROLOL [Concomitant]
     Active Substance: METOPROLOL
  12. LEVOTHYROXINE [Concomitant]
     Active Substance: LEVOTHYROXINE
  13. RIVAROXABAN [Concomitant]
     Active Substance: RIVAROXABAN

REACTIONS (2)
  - Off label use [Unknown]
  - No adverse event [Unknown]
